FAERS Safety Report 10870330 (Version 1)
Quarter: 2015Q1

REPORT INFORMATION
  Report Type: Spontaneous
  Country: GB (occurrence: GB)
  Receive Date: 20150226
  Receipt Date: 20150226
  Transmission Date: 20150721
  Serious: Yes (Hospitalization)
  Sender: FDA-Public Use
  Company Number: GB-TEVA-542624ACC

PATIENT
  Age: 76 Year
  Sex: Male
  Weight: 83.8 kg

DRUGS (12)
  1. TRIMETHOPRIM. [Suspect]
     Active Substance: TRIMETHOPRIM
     Indication: INFECTION
     Dosage: 400 MILLIGRAM DAILY;
     Dates: start: 20150122, end: 20150129
  2. ALLOPURINOL. [Concomitant]
     Active Substance: ALLOPURINOL
     Dates: start: 20141202, end: 20150101
  3. FLUCLOXACILLIN [Concomitant]
     Active Substance: FLUCLOXACILLIN
     Dates: start: 20141211, end: 20141218
  4. HYDROCORTISONE. [Concomitant]
     Active Substance: HYDROCORTISONE
     Dates: start: 20150114, end: 20150119
  5. CAPSAICIN. [Concomitant]
     Active Substance: CAPSAICIN
     Dates: start: 20150116, end: 20150123
  6. SILDENAFIL. [Concomitant]
     Active Substance: SILDENAFIL
     Dates: start: 20141211, end: 20150127
  7. TERBINAFINE [Concomitant]
     Active Substance: TERBINAFINE
     Dates: start: 20141211, end: 20150127
  8. PARACETAMOL [Concomitant]
     Active Substance: ACETAMINOPHEN
     Dates: start: 20141103, end: 20141230
  9. SIMVASTATIN. [Concomitant]
     Active Substance: SIMVASTATIN
     Dates: start: 20141103, end: 20150129
  10. CODEINE PHOSPHATE [Concomitant]
     Active Substance: CODEINE PHOSPHATE
     Dates: start: 20141202, end: 20141230
  11. INDAPAMIDE. [Concomitant]
     Active Substance: INDAPAMIDE
     Indication: DIURETIC THERAPY
     Dates: start: 20141103, end: 20150129
  12. LISINOPRIL. [Concomitant]
     Active Substance: LISINOPRIL
     Dates: start: 20141103, end: 20150127

REACTIONS (2)
  - Hyponatraemia [Recovering/Resolving]
  - Confusional state [Unknown]

NARRATIVE: CASE EVENT DATE: 20150201
